FAERS Safety Report 18004891 (Version 4)
Quarter: 2020Q3

REPORT INFORMATION
  Report Type: Spontaneous
  Country: US (occurrence: US)
  Receive Date: 20200709
  Receipt Date: 20200812
  Transmission Date: 20201103
  Serious: Yes (Other)
  Sender: FDA-Public Use
  Company Number: US-PFIZER INC-2020261467

PATIENT
  Age: 78 Year
  Sex: Male

DRUGS (1)
  1. VYNDAMAX [Suspect]
     Active Substance: TAFAMIDIS
     Indication: CARDIAC AMYLOIDOSIS
     Dosage: 61 MG, DAILY (61MG CAPSULE, ONE CAPSULE DAILY, BY MOUTH)
     Route: 048

REACTIONS (4)
  - Tooth abscess [Unknown]
  - Bladder cancer [Unknown]
  - Illness [Unknown]
  - General physical health deterioration [Recovering/Resolving]
